FAERS Safety Report 7915917-0 (Version None)
Quarter: 2011Q4

REPORT INFORMATION
  Report Type: 
  Country: None (occurrence: None)
  Receive Date: 20111115
  Receipt Date: 20111103
  Transmission Date: 20120403
  Serious: Yes (Other)
  Sender: FDA-Public Use
  Company Number: US-ELI_LILLY_AND_COMPANY-US201111004047

PATIENT
  Age: 65 Year
  Sex: Female

DRUGS (1)
  1. FORTEO [Suspect]
     Indication: OSTEOPOROSIS
     Dosage: UNK, QD
     Route: 065
     Dates: start: 20070809

REACTIONS (5)
  - LIMB OPERATION [None]
  - FEMUR FRACTURE [None]
  - UPPER LIMB FRACTURE [None]
  - ANKLE FRACTURE [None]
  - PATELLA FRACTURE [None]
